FAERS Safety Report 25673497 (Version 1)
Quarter: 2025Q3

REPORT INFORMATION
  Report Type: Spontaneous
  Country: US (occurrence: US)
  Receive Date: 20250813
  Receipt Date: 20250813
  Transmission Date: 20251020
  Serious: No
  Sender: ROCHE
  Company Number: US-ROCHE-10000359013

PATIENT
  Sex: Female

DRUGS (3)
  1. ACTEMRA [Suspect]
     Active Substance: TOCILIZUMAB
     Indication: Giant cell arteritis
     Dosage: STRENGTH AND DOSE:162MG/0.9M
     Route: 058
     Dates: start: 202503
  2. WEGOVY [Suspect]
     Active Substance: SEMAGLUTIDE
     Indication: Product used for unknown indication
     Route: 065
  3. CAMZYOS [Concomitant]
     Active Substance: MAVACAMTEN

REACTIONS (3)
  - Swelling [Unknown]
  - Dyspnoea [Recovering/Resolving]
  - Weight decreased [Unknown]
